FAERS Safety Report 5688982-1 (Version None)
Quarter: 2008Q1

REPORT INFORMATION
  Report Type: 
  Country: None (occurrence: None)
  Receive Date: 20080331
  Receipt Date: 20080320
  Transmission Date: 20080703
  Serious: Yes (Other)
  Sender: FDA-Public Use
  Company Number: A0682445A

PATIENT
  Age: 67 Year
  Sex: Male
  Weight: 102.3 kg

DRUGS (8)
  1. AVODART [Suspect]
     Indication: BENIGN PROSTATIC HYPERPLASIA
     Dosage: .5MG PER DAY
     Route: 048
     Dates: start: 20070601, end: 20070915
  2. FLOMAX [Concomitant]
     Indication: BENIGN PROSTATIC HYPERPLASIA
     Dosage: .4MG TWICE PER DAY
     Route: 048
     Dates: start: 20030101, end: 20070915
  3. NASACORT AQ [Concomitant]
     Route: 045
     Dates: start: 20030101, end: 20070915
  4. DIOVAN [Concomitant]
     Dosage: 160MG PER DAY
     Route: 048
     Dates: start: 20030101, end: 20070915
  5. LASIX [Concomitant]
     Dosage: 10MG PER DAY
     Route: 048
     Dates: start: 20030101, end: 20070915
  6. ALLOPURINOL [Concomitant]
     Indication: GOUT
     Dosage: 300MG PER DAY
     Route: 048
     Dates: start: 20030101, end: 20070915
  7. ASTELIN [Concomitant]
     Route: 045
     Dates: start: 20030101, end: 20070915
  8. LIPITOR [Concomitant]
     Indication: BLOOD CHOLESTEROL INCREASED
     Dosage: 10MG PER DAY
     Route: 048
     Dates: start: 20030101, end: 20070915

REACTIONS (10)
  - BALANCE DISORDER [None]
  - DEAFNESS NEUROSENSORY [None]
  - LABYRINTHITIS [None]
  - OEDEMA PERIPHERAL [None]
  - PHARYNGOLARYNGEAL PAIN [None]
  - PRURITUS [None]
  - QUALITY OF LIFE DECREASED [None]
  - RASH [None]
  - TINNITUS [None]
  - VERTIGO [None]
